FAERS Safety Report 16060365 (Version 1)
Quarter: 2019Q1

REPORT INFORMATION
  Report Type: Report from Study
  Country: ZA (occurrence: ZA)
  Receive Date: 20190312
  Receipt Date: 20190312
  Transmission Date: 20190418
  Serious: Yes (Hospitalization)
  Sender: FDA-Public Use
  Company Number: ZA-ROCHE-2269989

PATIENT
  Age: 37 Year
  Sex: Female
  Weight: 135.45 kg

DRUGS (1)
  1. MABTHERA [Suspect]
     Active Substance: RITUXIMAB
     Indication: RHEUMATOID ARTHRITIS
     Route: 065
     Dates: start: 2012

REACTIONS (3)
  - Cholelithiasis [Recovered/Resolved]
  - Urinary tract infection [Recovered/Resolved]
  - Ill-defined disorder [Unknown]

NARRATIVE: CASE EVENT DATE: 201508
